FAERS Safety Report 6119367 (Version 23)
Quarter: 2013Q1

REPORT INFORMATION
  Report Type: Spontaneous
  Country: US (occurrence: US)
  Receive Date: 20060831
  Receipt Date: 20130222
  Transmission Date: 20140127
  Serious: Yes (Death, Hospitalization, Other)
  Sender: FDA-Public Use
  Company Number: PHEH2006US10901

PATIENT
  Age: 42 Year
  Sex: Female

DRUGS (18)
  1. AREDIA [Suspect]
     Indication: METASTASES TO BONE
     Dosage: 90 MG, QMO
     Route: 042
     Dates: start: 1999, end: 20020313
  2. ZOMETA [Suspect]
     Indication: METASTASES TO BONE
     Route: 042
     Dates: start: 2000
  3. ZOMETA [Suspect]
     Indication: BREAST CANCER
     Dosage: 4 MG, QMO
     Route: 042
     Dates: start: 20020417, end: 20060515
  4. PERCOCET [Concomitant]
  5. HERCEPTIN ^GENENTECH^ [Concomitant]
  6. PENICILLIN VK [Concomitant]
  7. PROZAC [Concomitant]
     Dosage: 20 MG, QD
  8. PERIDEX [Concomitant]
  9. MARINOL [Concomitant]
  10. RADIATION THERAPY [Concomitant]
  11. FASLODEX [Concomitant]
     Dosage: 250 MG, QW4
     Route: 030
  12. DECADRON                                /CAN/ [Concomitant]
     Dosage: 4 MG, BID
  13. AMBIEN [Concomitant]
  14. PRILOSEC [Concomitant]
  15. MS CONTIN [Concomitant]
  16. ATIVAN [Concomitant]
  17. ARANESP [Concomitant]
     Dosage: 200 UG
  18. ABRAXANE [Concomitant]

REACTIONS (66)
  - Breast cancer metastatic [Fatal]
  - Malignant neoplasm progression [Fatal]
  - Metastases to central nervous system [Unknown]
  - Central nervous system lesion [Unknown]
  - Hallucination [Unknown]
  - Substance-induced psychotic disorder [Unknown]
  - Osteonecrosis of jaw [Unknown]
  - General physical health deterioration [Unknown]
  - Anxiety [Unknown]
  - Pain [Unknown]
  - Decreased interest [Unknown]
  - Dental caries [Unknown]
  - Gingivitis [Unknown]
  - Sinusitis [Unknown]
  - Osteoradionecrosis [Unknown]
  - Impaired healing [Unknown]
  - Bone disorder [Unknown]
  - Periodontitis [Unknown]
  - Dry mouth [Unknown]
  - Wound [Unknown]
  - Headache [Unknown]
  - Anaemia [Unknown]
  - Arthritis [Unknown]
  - Back disorder [Unknown]
  - Syncope [Unknown]
  - Pain in jaw [Unknown]
  - Ulcer [Unknown]
  - Goitre [Unknown]
  - Scoliosis [Unknown]
  - Hiatus hernia [Unknown]
  - Gastrointestinal haemorrhage [Unknown]
  - Haematemesis [Unknown]
  - Dehydration [Unknown]
  - Epistaxis [Unknown]
  - Presyncope [Unknown]
  - Asthenia [Unknown]
  - Toxicity to various agents [Unknown]
  - Encephalomalacia [Unknown]
  - Photophobia [Unknown]
  - Hypermetabolism [Unknown]
  - Arteriosclerosis [Unknown]
  - Renal cyst [Unknown]
  - Pulmonary mass [Unknown]
  - Deafness neurosensory [Unknown]
  - Cerumen impaction [Unknown]
  - Balance disorder [Unknown]
  - Fall [Unknown]
  - Osteolysis [Unknown]
  - Colon adenoma [Unknown]
  - Insomnia [Unknown]
  - Constipation [Unknown]
  - Diarrhoea [Unknown]
  - Hypokinesia [Unknown]
  - Thyroid mass [Unknown]
  - Osteoarthritis [Unknown]
  - White matter lesion [Unknown]
  - Visual acuity reduced [Unknown]
  - Osteosclerosis [Unknown]
  - Bone fragmentation [Unknown]
  - Fungal infection [Unknown]
  - Metastases to bone [Unknown]
  - Rheumatic disorder [Unknown]
  - Thyroid neoplasm [Unknown]
  - Gastrooesophageal reflux disease [Unknown]
  - Second primary malignancy [Unknown]
  - Osteomyelitis [Unknown]
